FAERS Safety Report 4356540-7 (Version None)
Quarter: 2004Q2

REPORT INFORMATION
  Report Type: 
  Country: None (occurrence: None)
  Receive Date: 20040507
  Receipt Date: 20040416
  Transmission Date: 20050107
  Serious: Yes (Death, Hospitalization)
  Sender: FDA-Public Use
  Company Number: USA040464025

PATIENT
  Age: 91 Year
  Sex: Female
  Weight: 53 kg

DRUGS (11)
  1. FORTEO [Suspect]
     Indication: OSTEOPOROSIS
     Dosage: 20 UG/1 DAY
     Dates: start: 20030701
  2. WELLBUTRIN SR [Concomitant]
  3. SYNTHROID [Concomitant]
  4. TORSEMIDE [Concomitant]
  5. ISOSORBIDE [Concomitant]
  6. TIAZAC [Concomitant]
  7. MICROKALEORID (POTASSIUM CHLORIDE) [Concomitant]
  8. PLAVIX [Concomitant]
  9. LANOXIN [Concomitant]
  10. MULTI-VITAMIN [Concomitant]
  11. CITRACAL (CALCIUM CITRATE) [Concomitant]

REACTIONS (5)
  - CONDITION AGGRAVATED [None]
  - CORONARY ARTERY DISEASE [None]
  - MYOCARDIAL INFARCTION [None]
  - PNEUMONIA [None]
  - VENTRICULAR FIBRILLATION [None]
